FAERS Safety Report 24704605 (Version 1)
Quarter: 2024Q4

REPORT INFORMATION
  Report Type: Report from Study
  Country: AR (occurrence: AR)
  Receive Date: 20241206
  Receipt Date: 20241206
  Transmission Date: 20250114
  Serious: Yes (Death)
  Sender: UCB
  Company Number: AR-UCBSA-2024062689

PATIENT
  Age: 84 Year
  Sex: Female

DRUGS (1)
  1. ROTIGOTINE [Suspect]
     Active Substance: ROTIGOTINE
     Indication: Parkinson^s disease
     Dosage: 4 MILLIGRAM, ONCE DAILY (QD)
     Route: 062
     Dates: start: 20220912, end: 20241125

REACTIONS (1)
  - Death [Fatal]

NARRATIVE: CASE EVENT DATE: 20241125
